FAERS Safety Report 10314326 (Version 1)
Quarter: 2014Q3

REPORT INFORMATION
  Report Type: Spontaneous
  Country: US (occurrence: None)
  Receive Date: 20140717
  Receipt Date: 20140717
  Transmission Date: 20150326
  Serious: Yes (Hospitalization)
  Sender: FDA-Public Use
  Company Number: None

PATIENT
  Age: 71 Year
  Sex: Male

DRUGS (2)
  1. CARBAMAZEPINE. [Suspect]
     Active Substance: CARBAMAZEPINE
     Indication: CONVULSION
     Route: 048
     Dates: start: 20091106
  2. LEVETIRACETAM. [Suspect]
     Active Substance: LEVETIRACETAM
     Indication: CONVULSION
     Route: 048
     Dates: start: 20131028, end: 20140117

REACTIONS (10)
  - Skin disorder [None]
  - Mental status changes [None]
  - Aphagia [None]
  - Insomnia [None]
  - Logorrhoea [None]
  - Peripheral swelling [None]
  - Memory impairment [None]
  - Abnormal behaviour [None]
  - Inappropriate affect [None]
  - Stent placement [None]
